FAERS Safety Report 6315233-7 (Version None)
Quarter: 2009Q3

REPORT INFORMATION
  Report Type: 
  Country: None (occurrence: None)
  Receive Date: 20090819
  Receipt Date: 20090810
  Transmission Date: 20100115
  Serious: Yes (Other)
  Sender: FDA-Public Use
  Company Number: PHEH2009US08781

PATIENT
  Sex: Female

DRUGS (6)
  1. TEKTURNA HCT [Suspect]
     Dosage: 300/25 MG, UNK
     Dates: start: 20070101
  2. INFLUENZA VACCINE [Suspect]
  3. POTASSIUM CHLORIDE [Concomitant]
  4. TENORMIN [Concomitant]
  5. LYRICA [Concomitant]
  6. BONIVA [Concomitant]

REACTIONS (7)
  - ASTHENIA [None]
  - DYSURIA [None]
  - FEELING ABNORMAL [None]
  - GLAUCOMA [None]
  - RASH MACULAR [None]
  - SCAR [None]
  - SKIN WRINKLING [None]
